FAERS Safety Report 4679833-2 (Version None)
Quarter: 2005Q2

REPORT INFORMATION
  Report Type: 
  Country: None (occurrence: None)
  Receive Date: 20050602
  Receipt Date: 20041112
  Transmission Date: 20051028
  Serious: No
  Sender: FDA-Public Use
  Company Number: US-GLAXOSMITHKLINE-A0533753A

PATIENT
  Age: 63 Year
  Sex: Male

DRUGS (3)
  1. AUGMENTIN [Suspect]
     Indication: SKIN INFECTION
     Dosage: 1MG TWICE PER DAY
     Route: 048
  2. TYLENOL (CAPLET) [Concomitant]
  3. LIBRIUM [Concomitant]

REACTIONS (2)
  - EXTRASYSTOLES [None]
  - PALPITATIONS [None]
